FAERS Safety Report 10257148 (Version 1)
Quarter: 2014Q2

REPORT INFORMATION
  Report Type: Spontaneous
  Country: GB (occurrence: GB)
  Receive Date: 20140625
  Receipt Date: 20140625
  Transmission Date: 20141212
  Serious: Yes (Hospitalization)
  Sender: FDA-Public Use
  Company Number: GB-DRREDDYS-GER/UKI/14/0041295

PATIENT
  Age: 26 Year
  Sex: Male
  Weight: 70.3 kg

DRUGS (1)
  1. TERBINAFINE [Suspect]
     Indication: TINEA PEDIS
     Route: 048
     Dates: start: 20140213, end: 20140213

REACTIONS (1)
  - Convulsion [Recovered/Resolved]
